FAERS Safety Report 4992734-5 (Version None)
Quarter: 2006Q1

REPORT INFORMATION
  Report Type: 
  Country: None (occurrence: None)
  Receive Date: 20060315
  Receipt Date: 20050523
  Transmission Date: 20060701
  Serious: Yes (Hospitalization)
  Sender: FDA-Public Use
  Company Number: USA050598747

PATIENT
  Age: 77 Year
  Sex: Female

DRUGS (2)
  1. GEMZAR [Suspect]
     Indication: HEPATIC NEOPLASM MALIGNANT
     Dosage: 1640 MG, INTRAVENOUS
     Route: 042
     Dates: start: 20050512
  2. XELODA [Concomitant]

REACTIONS (2)
  - PLATELET COUNT DECREASED [None]
  - RASH [None]
